FAERS Safety Report 24323785 (Version 1)
Quarter: 2024Q3

REPORT INFORMATION
  Report Type: Spontaneous
  Country: GB (occurrence: GB)
  Receive Date: 20240916
  Receipt Date: 20240916
  Transmission Date: 20241017
  Serious: Yes (Other)
  Sender: TEVA
  Company Number: GB-MHRA-TPP32334982C2160230YC1725634565499

PATIENT
  Age: 75 Year
  Sex: Female
  Weight: 72 kg

DRUGS (1)
  1. PREDNISOLONE [Suspect]
     Active Substance: PREDNISOLONE
     Indication: Ill-defined disorder
     Dosage: TPP YC - PLEASE RECLASSIFY
     Route: 065
     Dates: start: 20240906

REACTIONS (2)
  - Suicidal ideation [Recovering/Resolving]
  - Swelling face [Recovering/Resolving]

NARRATIVE: CASE EVENT DATE: 20240906
